FAERS Safety Report 6113917-7 (Version None)
Quarter: 2009Q1

REPORT INFORMATION
  Report Type: 
  Country: None (occurrence: None)
  Receive Date: 20090312
  Receipt Date: 20080916
  Transmission Date: 20090719
  Serious: No
  Sender: FDA-Public Use
  Company Number: US-ABBOTT-08P-163-0476758-00

PATIENT
  Sex: Female
  Weight: 59.928 kg

DRUGS (2)
  1. LUPRON DEPOT [Suspect]
     Indication: ENDOMETRIOSIS
     Route: 050
     Dates: start: 20080602, end: 20080903
  2. VICODIN [Concomitant]
     Indication: PAIN
     Route: 048
     Dates: start: 20070101

REACTIONS (3)
  - FATIGUE [None]
  - HOT FLUSH [None]
  - NIGHT SWEATS [None]
